FAERS Safety Report 6437092-4 (Version None)
Quarter: 2009Q4

REPORT INFORMATION
  Report Type: 
  Country: None (occurrence: None)
  Receive Date: 20091112
  Receipt Date: 20091029
  Transmission Date: 20100525
  Serious: Yes (Other)
  Sender: FDA-Public Use
  Company Number: PHBS2007AU11251

PATIENT
  Age: 26 Year
  Sex: Female

DRUGS (15)
  1. HYDRALAZINE HCL [Suspect]
     Dosage: 10 MG, QD
  2. METOPROLOL [Suspect]
     Dosage: 15 MG, QD
  3. METOPROLOL [Suspect]
     Dosage: 100 MG, QD
  4. LABETALOL HCL [Concomitant]
     Dosage: 200 MG, QD
  5. ESMOLOL HCL [Concomitant]
     Dosage: 0.5 MG/KG/H, UNK
  6. MAGNESIUM [Concomitant]
     Dosage: 4 G/H
     Route: 042
  7. CAPTOPRIL [Concomitant]
     Dosage: 25 MG, BID
  8. ENOXAPARIN SODIUM [Concomitant]
     Dosage: 100 MG, UNK
  9. PROTAMINE SULFATE [Concomitant]
     Dosage: 50 MG, UNK
  10. FRESH FROZEN PLASMA [Concomitant]
     Dosage: 4 IU, UNK
  11. ANAESTHESIN [Concomitant]
  12. REMIFENTANIL [Concomitant]
  13. PROPOFOL [Concomitant]
     Route: 042
  14. MORPHINE [Concomitant]
  15. OXYTOCIN [Concomitant]

REACTIONS (8)
  - BRADYCARDIA FOETAL [None]
  - CAESAREAN SECTION [None]
  - COUGH [None]
  - DRUG EXPOSURE DURING PREGNANCY [None]
  - HAEMOLYSIS [None]
  - HEPATIC ENZYME INCREASED [None]
  - PLATELET COUNT DECREASED [None]
  - WOUND INFECTION BACTERIAL [None]
